FAERS Safety Report 14878577 (Version 1)
Quarter: 2018Q2

REPORT INFORMATION
  Report Type: Spontaneous
  Country: FR (occurrence: FR)
  Receive Date: 20180511
  Receipt Date: 20180511
  Transmission Date: 20180711
  Serious: Yes (Hospitalization)
  Sender: FDA-Public Use
  Company Number: FR-MERCK KGAA-2047599

PATIENT
  Age: 69 Year
  Sex: Female

DRUGS (2)
  1. NOVOTHYROX [Suspect]
     Active Substance: LEVOTHYROXINE SODIUM
     Indication: HYPOTHYROIDISM
     Dates: start: 201705
  2. NOVOTHYROX [Suspect]
     Active Substance: LEVOTHYROXINE SODIUM
     Dates: start: 201705

REACTIONS (24)
  - Aggression [None]
  - Depression [None]
  - Muscle spasms [None]
  - Palpitations [None]
  - Chest discomfort [None]
  - Blood thyroid stimulating hormone decreased [None]
  - Vertigo [None]
  - Gastrointestinal disorder [None]
  - Dyspnoea [None]
  - Chest pain [None]
  - Gait inability [None]
  - Paraesthesia [None]
  - Arthralgia [None]
  - Visual impairment [None]
  - Thyroxine increased [None]
  - Tachycardia [None]
  - Fatigue [None]
  - Anxiety [None]
  - Diarrhoea [None]
  - Insomnia [None]
  - Crying [None]
  - Pain [None]
  - Hyperhidrosis [None]
  - Hot flush [None]

NARRATIVE: CASE EVENT DATE: 201802
